FAERS Safety Report 15546594 (Version 1)
Quarter: 2018Q4

REPORT INFORMATION
  Report Type: Spontaneous
  Country: LB (occurrence: LB)
  Receive Date: 20181024
  Receipt Date: 20181024
  Transmission Date: 20190205
  Serious: Yes (Other)
  Sender: FDA-Public Use
  Company Number: LB-ABBVIE-18P-093-2218762-00

PATIENT
  Age: 23 Year
  Sex: Female

DRUGS (11)
  1. VINCRISTINE [Concomitant]
     Active Substance: VINCRISTINE
     Indication: ACUTE LYMPHOCYTIC LEUKAEMIA
     Dosage: 1.5 MG/M2 (CAPPED AT 2 MG)
     Route: 037
     Dates: start: 20171222
  2. VENETOCLAX. [Suspect]
     Active Substance: VENETOCLAX
     Dosage: DAY 5
     Route: 048
     Dates: start: 20180102
  3. METHOTREXATE. [Concomitant]
     Active Substance: METHOTREXATE
     Indication: ACUTE LYMPHOCYTIC LEUKAEMIA
     Dosage: DAY 14
     Route: 037
  4. VENETOCLAX. [Suspect]
     Active Substance: VENETOCLAX
     Dosage: DAY 4
     Route: 048
     Dates: start: 20180101, end: 20180101
  5. PREDNISONE. [Concomitant]
     Active Substance: PREDNISONE
     Indication: ACUTE LYMPHOCYTIC LEUKAEMIA
     Dosage: 60 MG/M2
     Dates: start: 20171222
  6. L-ASPARAGINASE [Concomitant]
     Active Substance: ASPARAGINASE
     Indication: ACUTE LYMPHOCYTIC LEUKAEMIA
     Dosage: 6000 UNITS/M2, 3 TIMES WEEKLY FOR 9 DOSES
     Route: 037
     Dates: start: 20171222
  7. CYTARABINE. [Concomitant]
     Active Substance: CYTARABINE
     Indication: ACUTE LYMPHOCYTIC LEUKAEMIA
     Dosage: DAY 0
     Route: 037
  8. VENETOCLAX. [Suspect]
     Active Substance: VENETOCLAX
     Indication: ACUTE LYMPHOCYTIC LEUKAEMIA
     Dosage: DAY 1
     Route: 048
     Dates: start: 20171229, end: 20171229
  9. VENETOCLAX. [Suspect]
     Active Substance: VENETOCLAX
     Dosage: DAY 2
     Route: 048
     Dates: start: 20171230, end: 20171230
  10. VENETOCLAX. [Suspect]
     Active Substance: VENETOCLAX
     Dosage: DAY 3
     Route: 048
     Dates: start: 20171231, end: 20171231
  11. VENETOCLAX. [Suspect]
     Active Substance: VENETOCLAX
     Route: 048
     Dates: start: 20180131

REACTIONS (3)
  - Tumour lysis syndrome [Recovering/Resolving]
  - Pancytopenia [Not Recovered/Not Resolved]
  - Off label use [Unknown]
